FAERS Safety Report 5140609-3 (Version None)
Quarter: 2006Q4

REPORT INFORMATION
  Report Type: 
  Country: None (occurrence: None)
  Receive Date: 20061024
  Receipt Date: 20061004
  Transmission Date: 20070319
  Serious: Yes (Hospitalization)
  Sender: FDA-Public Use
  Company Number: FR200607005272

PATIENT
  Age: 68 Year
  Sex: Female

DRUGS (3)
  1. FORTEO [Suspect]
     Indication: OSTEOPOROSIS
     Dosage: 20 UG, DAILY (1//D),SUBCUTANEOUS; SEE IMAGE
     Route: 058
     Dates: start: 20060605, end: 20060904
  2. FORTEO [Suspect]
     Indication: OSTEOPOROSIS
     Dosage: 20 UG, DAILY (1//D),SUBCUTANEOUS; SEE IMAGE
     Route: 058
     Dates: start: 20060923
  3. FORTEO [Concomitant]

REACTIONS (4)
  - BACK PAIN [None]
  - MUSCLE CONTRACTURE [None]
  - MUSCLE SPASMS [None]
  - SPINAL FRACTURE [None]
